FAERS Safety Report 7397011-3 (Version None)
Quarter: 2011Q1

REPORT INFORMATION
  Report Type: 
  Country: None (occurrence: None)
  Receive Date: 20110331
  Receipt Date: 20110331
  Transmission Date: 20110831
  Serious: Yes (Life-Threatening, Hospitalization, Other)
  Sender: FDA-Public Use
  Company Number: None

PATIENT
  Age: 30 Year
  Sex: Male
  Weight: 141.5223 kg

DRUGS (2)
  1. EFFEXOR XR [Suspect]
     Indication: BIPOLAR I DISORDER
     Dosage: 2-150MG CAPSULE 1 X A DAY
     Dates: start: 20110201
  2. EFFEXOR XR [Suspect]
     Indication: BIPOLAR DISORDER
     Dosage: 2-150MG CAPSULE 1 X A DAY
     Dates: start: 20110201

REACTIONS (5)
  - CONDITION AGGRAVATED [None]
  - MEDICATION RESIDUE [None]
  - PRODUCT SUBSTITUTION ISSUE [None]
  - SUICIDAL IDEATION [None]
  - DEPRESSION [None]
